FAERS Safety Report 5169129-7 (Version None)
Quarter: 2006Q4

REPORT INFORMATION
  Report Type: 
  Country: None (occurrence: None)
  Receive Date: 20061211
  Receipt Date: 20061130
  Transmission Date: 20070319
  Serious: Yes (Hospitalization)
  Sender: FDA-Public Use
  Company Number: NO-MERCK-0612USA01056

PATIENT
  Age: 81 Year
  Sex: Female

DRUGS (5)
  1. PRINIVIL [Suspect]
     Indication: HYPERTENSION
     Route: 048
  2. GLIMEPIRIDE [Concomitant]
     Indication: DIABETES MELLITUS NON-INSULIN-DEPENDENT
     Route: 048
  3. METFORMIN HCL [Suspect]
     Indication: DIABETES MELLITUS NON-INSULIN-DEPENDENT
     Route: 048
  4. HYDRODIURIL [Concomitant]
     Route: 048
  5. [THERAPY UNSPECIFIED] [Concomitant]
     Route: 065

REACTIONS (10)
  - ABDOMINAL PAIN [None]
  - DIARRHOEA [None]
  - HAEMATEMESIS [None]
  - HYPERTHERMIA [None]
  - HYPERVENTILATION [None]
  - LACTIC ACIDOSIS [None]
  - MALAISE [None]
  - RECTAL HAEMORRHAGE [None]
  - RENAL FAILURE [None]
  - VOMITING [None]
